FAERS Safety Report 20530157 (Version 1)
Quarter: 2022Q1

REPORT INFORMATION
  Report Type: Spontaneous
  Country: US (occurrence: US)
  Receive Date: 20220301
  Receipt Date: 20220301
  Transmission Date: 20220424
  Serious: No
  Sender: FDA-Public Use
  Company Number: US-BAUSCH-BL-2022-005178

PATIENT
  Age: 60 Year
  Sex: Female

DRUGS (3)
  1. LUMIFY [Suspect]
     Active Substance: BRIMONIDINE TARTRATE
     Indication: Ocular hyperaemia
     Dosage: 1 GTT AS NEEDED
     Route: 047
     Dates: start: 202104, end: 2021
  2. LUMIFY [Suspect]
     Active Substance: BRIMONIDINE TARTRATE
     Dosage: 1 GTT AS NEEDED
     Route: 047
     Dates: start: 2021
  3. LUMIFY [Suspect]
     Active Substance: BRIMONIDINE TARTRATE
     Dosage: 1 GTT AS NEEDED
     Route: 047
     Dates: start: 202202, end: 202202

REACTIONS (3)
  - Vision blurred [Recovered/Resolved]
  - Instillation site foreign body sensation [Recovered/Resolved]
  - Instillation site dryness [Recovered/Resolved]

NARRATIVE: CASE EVENT DATE: 20210101
